FAERS Safety Report 9552574 (Version 1)
Quarter: 2013Q3

REPORT INFORMATION
  Report Type: Spontaneous
  Country: US (occurrence: None)
  Receive Date: 20130724
  Receipt Date: 20130724
  Transmission Date: 20140515
  Serious: Yes (Other)
  Sender: FDA-Public Use
  Company Number: PHEH2013US008827

PATIENT
  Age: 57 Year
  Sex: Female

DRUGS (4)
  1. HYDROCHLOROTHIAZIDE (+) VALSARTAN [Suspect]
     Dosage: 320 MG VALS AND 25 MG HCTZ), UNK
  2. AMLODIPINE [Concomitant]
  3. ACIPHEX [Concomitant]
  4. XANAX [Concomitant]

REACTIONS (1)
  - Blood pressure inadequately controlled [None]
